FAERS Safety Report 5063758-7 (Version None)
Quarter: 2006Q3

REPORT INFORMATION
  Report Type: 
  Country: None (occurrence: None)
  Receive Date: 20060703
  Receipt Date: 20051110
  Transmission Date: 20061208
  Serious: No
  Sender: FDA-Public Use
  Company Number: 2005S1011027

PATIENT
  Age: 50 Year
  Sex: Female

DRUGS (4)
  1. CLOZAPINE [Suspect]
     Dosage: SEE IMAGE
     Route: 048
     Dates: start: 20050927
  2. VALPROATE SODIUM [Concomitant]
  3. DOCUSATE SODIUM [Concomitant]
  4. FAMOTIDINE [Concomitant]

REACTIONS (1)
  - GRANULOCYTOPENIA [None]
